FAERS Safety Report 4407814-2 (Version None)
Quarter: 2004Q3

REPORT INFORMATION
  Report Type: 
  Country: None (occurrence: None)
  Receive Date: 20040721
  Receipt Date: 20040708
  Transmission Date: 20050211
  Serious: Yes (Hospitalization)
  Sender: FDA-Public Use
  Company Number: JP-JNJFOC-20040200004

PATIENT
  Age: 69 Year
  Sex: Male

DRUGS (15)
  1. RISPERDAL [Suspect]
     Indication: SCHIZOPHRENIA
     Dosage: SEE IMAGE
     Route: 048
     Dates: start: 20030616, end: 20030622
  2. RISPERDAL [Suspect]
     Indication: SCHIZOPHRENIA
     Dosage: SEE IMAGE
     Route: 048
     Dates: start: 20030623, end: 20040116
  3. RISPERDAL [Suspect]
     Indication: SCHIZOPHRENIA
     Dosage: SEE IMAGE
     Route: 048
     Dates: start: 20040117
  4. DAI-KENCHU-TO (ALL OTHER THERAPEUTIC PRODUCTS) [Concomitant]
  5. MAGNESIUM OXIDE (MAGNESIUM OXIDE) [Concomitant]
  6. LORAZEPAM [Concomitant]
  7. PANTETHINE (PANTETHINE) [Concomitant]
  8. ANTIDIARRHEALS, INTESTINAL REGULATORS (ALL OTHER THERAPEUTIC PRODUCTS) [Concomitant]
  9. MOSAPRIDE CITRATE (MOSAPRIDE CITRATE) [Concomitant]
  10. DIMETICONE (DIMETICONE) [Concomitant]
  11. DISTIGMINE BROMIDE (DISTIGMINE BROMIDE) [Concomitant]
  12. PIPERACILLIN SODIUM [Concomitant]
  13. ALPRAZOLAM [Concomitant]
  14. ZOPICLONE (ZOPICLONE) [Concomitant]
  15. SENNOSIDE (ALL OTHER THERAPEUTIC PRODUCTS) [Concomitant]

REACTIONS (9)
  - ANOREXIA [None]
  - CONDITION AGGRAVATED [None]
  - ENTEROCOLITIS [None]
  - EXTRAPYRAMIDAL DISORDER [None]
  - HAEMOCHROMATOSIS [None]
  - ILEUS PARALYTIC [None]
  - IRON DEFICIENCY ANAEMIA [None]
  - PARKINSONIAN GAIT [None]
  - SCHIZOPHRENIA [None]
